FAERS Safety Report 6868041-2 (Version None)
Quarter: 2010Q3

REPORT INFORMATION
  Report Type: 
  Country: None (occurrence: None)
  Receive Date: 20100722
  Receipt Date: 20080513
  Transmission Date: 20110219
  Serious: No
  Sender: FDA-Public Use
  Company Number: US-PFIZER INC-2008041128

PATIENT
  Sex: Female
  Weight: 71.4 kg

DRUGS (6)
  1. CHANTIX [Suspect]
     Indication: SMOKING CESSATION THERAPY
     Dates: start: 20080503
  2. ANTIDEPRESSANTS [Concomitant]
     Indication: DEPRESSION
  3. CHOLESTEROL- AND TRIGLYCERIDE REDUCERS [Concomitant]
     Indication: BLOOD CHOLESTEROL INCREASED
  4. ANTIHYPERTENSIVES [Concomitant]
     Indication: HYPERTENSION
  5. CARDIAC THERAPY [Concomitant]
     Indication: CARDIAC DISORDER
  6. DRUG USED IN DIABETES [Concomitant]
     Indication: DIABETES MELLITUS

REACTIONS (6)
  - ABDOMINAL PAIN UPPER [None]
  - DECREASED APPETITE [None]
  - DIARRHOEA [None]
  - INCORRECT DOSE ADMINISTERED [None]
  - VOMITING [None]
  - WEIGHT DECREASED [None]
